FAERS Safety Report 15275042 (Version 2)
Quarter: 2018Q3

REPORT INFORMATION
  Report Type: Spontaneous
  Country: US (occurrence: US)
  Receive Date: 20180814
  Receipt Date: 20180911
  Transmission Date: 20181010
  Serious: No
  Sender: FDA-Public Use
  Company Number: US-PFIZER INC-2017522441

PATIENT
  Age: 33 Year
  Sex: Female
  Weight: 122.45 kg

DRUGS (5)
  1. LYRICA [Suspect]
     Active Substance: PREGABALIN
     Dosage: 1500 MG, (2 CAPS IN THE MORNING, 1 IN THE AFTERNOON AND 2 AT BEDTIME)
  2. LYRICA [Suspect]
     Active Substance: PREGABALIN
     Indication: FIBROMYALGIA
     Dosage: 300 MG, UNK (QTY 180/DAY SUPPLY 30)
  3. LYRICA [Suspect]
     Active Substance: PREGABALIN
     Dosage: 1800 MG, DAILY (2 CAPS IN THE MORNING, 2 IN THE AFTERNOON, AND 2 AT BEDTIME)
     Route: 048
  4. LYRICA [Suspect]
     Active Substance: PREGABALIN
     Dosage: 1200 MG, (1 CAP IN MORNING, 1 IN THE EVENING, AND 2 AT BEDTIME)
  5. LYRICA [Suspect]
     Active Substance: PREGABALIN
     Dosage: 1800 MG, DAILY (QTY 180/DAY SUPPLY 30)

REACTIONS (3)
  - Fibromyalgia [Recovering/Resolving]
  - Condition aggravated [Recovering/Resolving]
  - Prescribed overdose [Unknown]
